FAERS Safety Report 10545305 (Version 1)
Quarter: 2014Q4

REPORT INFORMATION
  Report Type: Spontaneous
  Country: US (occurrence: US)
  Receive Date: 20141027
  Receipt Date: 20141027
  Transmission Date: 20150529
  Serious: Yes (Other)
  Sender: FDA-Public Use
  Company Number: US-BAUSCH-BL-2014-007323

PATIENT
  Age: 78 Year
  Sex: Female

DRUGS (1)
  1. PENLAC [Suspect]
     Active Substance: CICLOPIROX
     Indication: ONYCHOMYCOSIS
     Route: 061

REACTIONS (2)
  - Finger amputation [None]
  - Squamous cell carcinoma [Unknown]
